FAERS Safety Report 6050631-0 (Version None)
Quarter: 2009Q1

REPORT INFORMATION
  Report Type: 
  Country: None (occurrence: None)
  Receive Date: 20090126
  Receipt Date: 20081226
  Transmission Date: 20090719
  Serious: No
  Sender: FDA-Public Use
  Company Number: US-BAYER-200841759NA

PATIENT
  Age: 24 Year
  Sex: Female
  Weight: 48 kg

DRUGS (1)
  1. MIRENA [Suspect]
     Indication: CONTRACEPTION
     Route: 015
     Dates: start: 20081127, end: 20081223

REACTIONS (1)
  - IUCD COMPLICATION [None]
